FAERS Safety Report 6145029-0 (Version None)
Quarter: 2009Q2

REPORT INFORMATION
  Report Type: 
  Country: None (occurrence: None)
  Receive Date: 20090406
  Receipt Date: 20090326
  Transmission Date: 20091009
  Serious: No
  Sender: FDA-Public Use
  Company Number: US-B.I. PHARMACEUTICALS,INC./RIDGEFIELD-2009-BP-03869BP

PATIENT
  Sex: Male

DRUGS (5)
  1. ZANTAC 75 [Suspect]
     Indication: ABDOMINAL DISTENSION
     Route: 048
     Dates: start: 20090301, end: 20090301
  2. ZANTAC 75 [Suspect]
     Indication: FLATULENCE
  3. ZANTAC 150 [Suspect]
     Indication: ABDOMINAL DISTENSION
     Route: 048
     Dates: start: 20090309
  4. ZANTAC 150 [Suspect]
     Indication: FLATULENCE
  5. ATENOLOL [Concomitant]
     Indication: HYPERTENSION
     Route: 048

REACTIONS (2)
  - FLATULENCE [None]
  - VISUAL IMPAIRMENT [None]
